FAERS Safety Report 7129322-0 (Version None)
Quarter: 2010Q4

REPORT INFORMATION
  Report Type: 
  Country: None (occurrence: None)
  Receive Date: 20101130
  Receipt Date: 20101117
  Transmission Date: 20110411
  Serious: No
  Sender: FDA-Public Use
  Company Number: US-PFIZER INC-2010152167

PATIENT

DRUGS (1)
  1. LYRICA [Suspect]
     Dosage: 50 MG, 1X/DAY

REACTIONS (2)
  - OEDEMA PERIPHERAL [None]
  - RASH [None]
